FAERS Safety Report 7272198-1 (Version None)
Quarter: 2011Q1

REPORT INFORMATION
  Report Type: 
  Country: None (occurrence: None)
  Receive Date: 20110203
  Receipt Date: 20110121
  Transmission Date: 20110831
  Serious: Yes (Other)
  Sender: FDA-Public Use
  Company Number: PHEH2010US03507

PATIENT
  Sex: Female

DRUGS (1)
  1. AREDIA [Suspect]
     Indication: BREAST CANCER
     Dosage: UNK

REACTIONS (22)
  - OSTEOARTHRITIS [None]
  - DEFORMITY [None]
  - OSTEONECROSIS OF JAW [None]
  - PAIN [None]
  - ANXIETY [None]
  - INJURY [None]
  - METASTASES TO BONE [None]
  - BACK PAIN [None]
  - ORAL CANDIDIASIS [None]
  - BONE DISORDER [None]
  - BONE DENSITY DECREASED [None]
  - EATING DISORDER [None]
  - DECREASED INTEREST [None]
  - HYPERHIDROSIS [None]
  - HYPERLIPIDAEMIA [None]
  - OBESITY [None]
  - HOT FLUSH [None]
  - TOOTH LOSS [None]
  - MAJOR DEPRESSION [None]
  - CYSTITIS BACTERIAL [None]
  - GASTROOESOPHAGEAL REFLUX DISEASE [None]
  - DRY MOUTH [None]
